FAERS Safety Report 8065375-3 (Version None)
Quarter: 2012Q1

REPORT INFORMATION
  Report Type: 
  Country: None (occurrence: None)
  Receive Date: 20120124
  Receipt Date: 20120116
  Transmission Date: 20120608
  Serious: Yes (Death, Hospitalization)
  Sender: FDA-Public Use
  Company Number: FR-TEVA-317414ISR

PATIENT
  Sex: Female

DRUGS (7)
  1. OXALIPLATIN [Suspect]
     Indication: RECTAL CANCER METASTATIC
     Dosage: ACCORDING COURSE
     Route: 042
     Dates: start: 20111130, end: 20111212
  2. METOPIMAZINE [Concomitant]
     Dosage: 45 MILLIGRAM;
     Route: 048
  3. EPREX [Concomitant]
     Dosage: 5714.2857 IU (INTERNATIONAL UNIT);
     Route: 058
  4. FLUOROURACIL [Suspect]
     Indication: RECTAL CANCER METASTATIC
     Dosage: ACCORDING COURSE
     Route: 042
     Dates: start: 20111130, end: 20111212
  5. CHLORPROMAZINE HCL [Concomitant]
     Dosage: 8 MILLIGRAM;
     Route: 048
  6. ALDACTONE [Concomitant]
     Dosage: 25 MILLIGRAM;
     Route: 048
  7. LEUCOVORIN CALCIUM [Concomitant]
     Dosage: ACCORDING COURSE
     Route: 042
     Dates: start: 20111130, end: 20111212

REACTIONS (8)
  - PERICARDIAL EFFUSION [None]
  - THIRST [None]
  - SEPTIC SHOCK [None]
  - MYOCARDITIS [None]
  - ELECTROCARDIOGRAM ST-T SEGMENT ELEVATION [None]
  - DIARRHOEA [None]
  - CHEST PAIN [None]
  - EJECTION FRACTION DECREASED [None]
